FAERS Safety Report 24163519 (Version 1)
Quarter: 2024Q3

REPORT INFORMATION
  Report Type: Spontaneous
  Country: ZA (occurrence: None)
  Receive Date: 20240801
  Receipt Date: 20240801
  Transmission Date: 20241017
  Serious: Yes (Hospitalization)
  Sender: ASTRAZENECA
  Company Number: 2024A169781

PATIENT
  Age: 59 Year
  Sex: Male

DRUGS (2)
  1. BUDESONIDE\FORMOTEROL FUMARATE DIHYDRATE [Suspect]
     Active Substance: BUDESONIDE\FORMOTEROL FUMARATE DIHYDRATE
     Indication: Asthma
     Dosage: 120 UG/INHAL, UNKNOWN. UNKNOWN
     Route: 055
  2. SANDOZ CO AMOXYCLAV [Concomitant]
     Indication: Otitis media
     Route: 048

REACTIONS (1)
  - Thyroid disorder [Unknown]
